FAERS Safety Report 6420449-5 (Version None)
Quarter: 2009Q4

REPORT INFORMATION
  Report Type: 
  Country: None (occurrence: None)
  Receive Date: 20091021
  Receipt Date: 20090814
  Transmission Date: 20100525
  Serious: No
  Sender: FDA-Public Use
  Company Number: ALL1-2009-02330

PATIENT
  Age: 7 Year
  Sex: Female
  Weight: 28.1 kg

DRUGS (2)
  1. VYVANSE [Suspect]
     Indication: ATTENTION DEFICIT/HYPERACTIVITY DISORDER
     Dosage: 20 MG, 1X/DAY:QD, ORAL : 1X/DAY:QD(1/2 OF A 20MG CAPSULE), ORAL
     Route: 048
     Dates: start: 20090810, end: 20090810
  2. VYVANSE [Suspect]
     Indication: ATTENTION DEFICIT/HYPERACTIVITY DISORDER
     Dosage: 20 MG, 1X/DAY:QD, ORAL : 1X/DAY:QD(1/2 OF A 20MG CAPSULE), ORAL
     Route: 048
     Dates: start: 20090811

REACTIONS (7)
  - ABDOMINAL PAIN UPPER [None]
  - AGITATION [None]
  - EMOTIONAL DISORDER [None]
  - FLAT AFFECT [None]
  - INSOMNIA [None]
  - ORAL HERPES [None]
  - WRONG TECHNIQUE IN DRUG USAGE PROCESS [None]
